FAERS Safety Report 11184171 (Version 8)
Quarter: 2017Q4

REPORT INFORMATION
  Report Type: Spontaneous
  Country: US (occurrence: US)
  Receive Date: 20150612
  Receipt Date: 20171121
  Transmission Date: 20180320
  Serious: No
  Sender: FDA-Public Use
  Company Number: US-PFIZER INC-2015196788

PATIENT
  Age: 83 Year
  Sex: Female
  Weight: 47.98 kg

DRUGS (16)
  1. ISOSORBIDE. [Concomitant]
     Active Substance: ISOSORBIDE
     Dosage: 30 MG, ONCE DAILY (IN THE EVENING)
  2. LISINOPRIL. [Concomitant]
     Active Substance: LISINOPRIL
     Dosage: 10 MG, ONCE DAILY (IN THE MORNING)
  3. METOPROLOL. [Concomitant]
     Active Substance: METOPROLOL
     Dosage: 25 MG, TWICE DAILY (ONE IN THE MORNING AND ONE AT NIGHT)
  4. SOMAVERT [Suspect]
     Active Substance: PEGVISOMANT
     Indication: PITUITARY TUMOUR
     Dosage: UNK
     Dates: start: 20150610
  5. SOMAVERT [Suspect]
     Active Substance: PEGVISOMANT
     Indication: GIGANTISM
     Dosage: 15 MG, TWICE WEEKLY
  6. KEPPRA [Concomitant]
     Active Substance: LEVETIRACETAM
     Dosage: 500 MG, TWICE DAILY (1 IN AM AND 1 IN THE PM)
  7. DOSTINEX [Concomitant]
     Active Substance: CABERGOLINE
     Dosage: UNK
  8. WARFARIN [Concomitant]
     Active Substance: WARFARIN
     Dosage: 1 MG, ONCE DAILY (AT 5 PM)
  9. POTASSIUM [Concomitant]
     Active Substance: POTASSIUM
     Dosage: 10 MG, TWICE DAILY (3 IN THE MORNING AND 2 IN THE EVENING)
  10. SOMAVERT [Suspect]
     Active Substance: PEGVISOMANT
     Indication: ACROMEGALY
     Dosage: UNK
  11. ATORVASTATIN [Concomitant]
     Active Substance: ATORVASTATIN
     Dosage: 40 MG, ONCE DAILY (AT NIGHT)
  12. NITROGLYCERIN. [Concomitant]
     Active Substance: NITROGLYCERIN
     Dosage: 0.4 MG, AS NEEDED
  13. PRAVASTATIN. [Concomitant]
     Active Substance: PRAVASTATIN
     Dosage: UNK
  14. LORAZEPAM. [Concomitant]
     Active Substance: LORAZEPAM
     Dosage: UNK
  15. SOMAVERT [Suspect]
     Active Substance: PEGVISOMANT
     Dosage: 15 MG, TWICE WEEKLY
     Route: 058
     Dates: start: 201512
  16. HCTZ [Concomitant]
     Active Substance: HYDROCHLOROTHIAZIDE
     Dosage: UNK

REACTIONS (5)
  - Inappropriate prescribing [Unknown]
  - Underdose [Unknown]
  - Drug dose omission [Unknown]
  - Back pain [Unknown]
  - Product quality issue [Unknown]

NARRATIVE: CASE EVENT DATE: 2017
